FAERS Safety Report 6609632-3 (Version None)
Quarter: 2010Q1

REPORT INFORMATION
  Report Type: 
  Country: None (occurrence: None)
  Receive Date: 20100302
  Receipt Date: 20091023
  Transmission Date: 20100710
  Serious: Yes (Other)
  Sender: FDA-Public Use
  Company Number: US-SANOFI-AVENTIS-200917792US

PATIENT
  Age: 78 Year
  Sex: Female
  Weight: 101 kg

DRUGS (11)
  1. LANTUS [Suspect]
     Dosage: DOSE AS USED: 33 UNITS AM/37 UNITS PM
     Route: 058
     Dates: start: 20050101
  2. LANTUS [Suspect]
     Route: 058
     Dates: start: 20050101
  3. SOLOSTAR [Suspect]
  4. METOPROLOL TARTRATE [Concomitant]
     Indication: BLOOD PRESSURE
     Route: 048
  5. LISINOPRIL [Concomitant]
     Route: 048
  6. LOVASTATIN [Concomitant]
     Route: 048
  7. FUROSEMIDE [Concomitant]
     Route: 048
  8. ASPIRIN [Concomitant]
     Route: 048
  9. ASACOL [Concomitant]
  10. VITAMIN C [Concomitant]
  11. CENTRUM SILVER [Concomitant]

REACTIONS (3)
  - FATIGUE [None]
  - HYPOGLYCAEMIC COMA [None]
  - WEIGHT INCREASED [None]
